FAERS Safety Report 4415328-9 (Version None)
Quarter: 2004Q3

REPORT INFORMATION
  Report Type: 
  Country: None (occurrence: None)
  Receive Date: 20040804
  Receipt Date: 20040719
  Transmission Date: 20050211
  Serious: Yes (Disabling)
  Sender: FDA-Public Use
  Company Number: PHBS2004IN09787

PATIENT
  Age: 30 Year
  Sex: Male

DRUGS (1)
  1. DICLOFENAC SODIUM [Suspect]
     Indication: NASOPHARYNGITIS
     Dosage: 75 MG, ONCE/SINGLE
     Route: 030
     Dates: start: 19961129

REACTIONS (3)
  - MEDICATION ERROR [None]
  - MONOPLEGIA [None]
  - SENSORY LOSS [None]
